FAERS Safety Report 8080958-2 (Version None)
Quarter: 2012Q1

REPORT INFORMATION
  Report Type: 
  Country: None (occurrence: None)
  Receive Date: 20120130
  Receipt Date: 20120123
  Transmission Date: 20120608
  Serious: Yes (Hospitalization)
  Sender: FDA-Public Use
  Company Number: FR-MERCK-1201USA03472

PATIENT
  Age: 37 Year
  Sex: Male

DRUGS (6)
  1. ZOFRAN [Suspect]
     Route: 048
     Dates: start: 20110621, end: 20110826
  2. EMEND [Suspect]
     Route: 048
     Dates: start: 20110621, end: 20110824
  3. ONDANSETRON [Suspect]
     Route: 042
     Dates: start: 20110621, end: 20110824
  4. CISPLATIN [Suspect]
     Indication: LUNG ADENOCARCINOMA METASTATIC
     Route: 042
     Dates: start: 20110621, end: 20110824
  5. METHYLPREDNISOLONE [Suspect]
     Route: 042
     Dates: start: 20110621, end: 20110824
  6. ALIMTA [Suspect]
     Indication: LUNG ADENOCARCINOMA METASTATIC
     Route: 042
     Dates: start: 20110621, end: 20110824

REACTIONS (7)
  - THROMBOCYTOPENIA [None]
  - METASTATIC BRONCHIAL CARCINOMA [None]
  - ANAEMIA [None]
  - ISCHAEMIC STROKE [None]
  - DISSEMINATED INTRAVASCULAR COAGULATION [None]
  - CONDITION AGGRAVATED [None]
  - NEOPLASM PROGRESSION [None]
